FAERS Safety Report 8093049-1 (Version None)
Quarter: 2012Q1

REPORT INFORMATION
  Report Type: 
  Country: None (occurrence: None)
  Receive Date: 20120128
  Receipt Date: 20111011
  Transmission Date: 20120608
  Serious: No
  Sender: FDA-Public Use
  Company Number: PR-ABBOTT-11P-131-0857225-00

PATIENT
  Sex: Female
  Weight: 81.72 kg

DRUGS (1)
  1. HUMIRA [Suspect]
     Indication: RHEUMATOID ARTHRITIS
     Route: 058
     Dates: start: 20110801, end: 20110901

REACTIONS (4)
  - VOMITING [None]
  - BLOOD GLUCOSE DECREASED [None]
  - ABDOMINAL DISCOMFORT [None]
  - COLD SWEAT [None]
